FAERS Safety Report 21360799 (Version 1)
Quarter: 2022Q3

REPORT INFORMATION
  Report Type: Spontaneous
  Country: US (occurrence: US)
  Receive Date: 20220921
  Receipt Date: 20220921
  Transmission Date: 20221026
  Serious: No
  Sender: FDA-Public Use
  Company Number: US-PFIZER INC-202201174025

PATIENT
  Sex: Female

DRUGS (1)
  1. LEVOTHYROXINE SODIUM [Suspect]
     Active Substance: LEVOTHYROXINE SODIUM
     Indication: Postmenopause
     Dosage: UNK
     Dates: start: 2020

REACTIONS (5)
  - Hormone level abnormal [Unknown]
  - Insomnia [Unknown]
  - Affective disorder [Unknown]
  - Overdose [Recovered/Resolved]
  - Prescribed overdose [Recovered/Resolved]
